FAERS Safety Report 19030448 (Version 1)
Quarter: 2021Q1

REPORT INFORMATION
  Report Type: Spontaneous
  Country: US (occurrence: US)
  Receive Date: 20210318
  Receipt Date: 20210318
  Transmission Date: 20210420
  Serious: Yes (Hospitalization)
  Sender: FDA-Public Use
  Company Number: None

PATIENT
  Age: 36 Year
  Sex: Female

DRUGS (13)
  1. FENTANYL. [Concomitant]
     Active Substance: FENTANYL
  2. POT CL MICRO ER [Concomitant]
  3. ONDANSETRON [Concomitant]
     Active Substance: ONDANSETRON
  4. TRAMADOL HCL [Concomitant]
     Active Substance: TRAMADOL HYDROCHLORIDE
  5. CEFDINIR. [Concomitant]
     Active Substance: CEFDINIR
  6. OXYCODONE [Concomitant]
     Active Substance: OXYCODONE
  7. COTELLIC [Suspect]
     Active Substance: COBIMETINIB
     Indication: CHOLANGIOCARCINOMA
     Route: 048
     Dates: start: 20210202
  8. ZELBORAF [Suspect]
     Active Substance: VEMURAFENIB
     Indication: CHOLANGIOCARCINOMA
     Route: 048
     Dates: start: 20210213
  9. DOXYCYCL HYC [Concomitant]
  10. FERROUS SULF [Concomitant]
     Active Substance: FERROUS SULFATE
  11. OXYCODONE AND ACETAMINOPHEN [Concomitant]
     Active Substance: ACETAMINOPHEN\OXYCODONE HYDROCHLORIDE
  12. ALPRAZOLAM. [Concomitant]
     Active Substance: ALPRAZOLAM
  13. PROCHLORPER [Concomitant]

REACTIONS (2)
  - Brain neoplasm [None]
  - Nausea [None]

NARRATIVE: CASE EVENT DATE: 20210222
